FAERS Safety Report 7375232-3 (Version None)
Quarter: 2011Q1

REPORT INFORMATION
  Report Type: 
  Country: None (occurrence: None)
  Receive Date: 20110325
  Receipt Date: 20110314
  Transmission Date: 20110831
  Serious: Yes (Hospitalization, Other)
  Sender: FDA-Public Use
  Company Number: US-ELI_LILLY_AND_COMPANY-US201101001754

PATIENT
  Sex: Male
  Weight: 77.098 kg

DRUGS (26)
  1. MTV [Concomitant]
     Dosage: UNK, DAILY (1/D)
     Route: 065
  2. FORADIL [Concomitant]
     Dosage: UNK, 2/D
     Route: 065
  3. PREDNISONE [Concomitant]
     Dosage: 10 MG, DAILY (1/D)
     Route: 065
  4. METOPROLOL [Concomitant]
     Dosage: 50 MG, 2/D
     Route: 065
  5. FENTANYL [Concomitant]
     Dosage: 12 MG, DAILY (1/D)
     Route: 065
  6. DOXYCYCLINE [Concomitant]
     Dosage: 100 MG, DAILY (1/D)
     Route: 065
  7. LORAZEPAM [Concomitant]
     Dosage: 1 MG, UNKNOWN
     Route: 065
  8. SIMVASTATIN [Concomitant]
     Dosage: 10 MG, 2/D
     Route: 065
  9. LEVOTHYROXINE SODIUM [Concomitant]
     Dosage: 175 UG, DAILY (1/D)
     Route: 065
  10. OMEPRAZOLE [Concomitant]
     Dosage: 40 MG, DAILY (1/D)
     Route: 065
  11. ASPIRIN [Concomitant]
     Dosage: 81 MG, DAILY (1/D)
     Route: 065
  12. CALCIUM [Concomitant]
     Dosage: 1000 MG, 2/D
     Route: 065
  13. GEMFIBROZIL [Concomitant]
     Dosage: 600 MG, 2/D
     Route: 065
  14. PULMICORT [Concomitant]
     Dosage: 180 MG, 3/D
     Route: 065
  15. PRISTIQ [Concomitant]
     Dosage: 100 MG, DAILY (1/D)
     Route: 065
  16. PREDNISONE [Concomitant]
     Dosage: 5 MG, DAILY (1/D)
     Route: 065
  17. NOVALM [Concomitant]
     Dosage: 14 U, EACH MORNING
     Route: 065
  18. NOVALM [Concomitant]
     Dosage: 6 U, EACH EVENING
     Route: 065
  19. HYDROCODONE BITARTRATE [Concomitant]
     Dosage: UNK, UNKNOWN
     Route: 065
  20. AMITRIPTYLINE [Concomitant]
     Dosage: 25 MG, UNKNOWN
     Route: 065
  21. MUCINEX [Concomitant]
     Dosage: 600 MG, 2/D
     Route: 065
  22. FORTEO [Suspect]
     Indication: OSTEOPOROSIS
     Dosage: 20 UG, DAILY (1/D)
     Route: 058
     Dates: start: 20101201
  23. REGLAN [Concomitant]
     Dosage: 10 MG, UNKNOWN
     Route: 065
  24. DUONEB [Concomitant]
     Dosage: UNK, 2/D
     Route: 065
  25. MIRALAX [Concomitant]
     Dosage: 19 QMS, DAILY
     Route: 065
  26. QUESTRAN [Concomitant]
     Dosage: 2 G, 2/D
     Route: 065

REACTIONS (2)
  - CHRONIC OBSTRUCTIVE PULMONARY DISEASE [None]
  - PNEUMONIA [None]
